FAERS Safety Report 4958318-X (Version None)
Quarter: 2006Q1

REPORT INFORMATION
  Report Type: 
  Country: None (occurrence: None)
  Receive Date: 20060329
  Receipt Date: 20060329
  Transmission Date: 20060701
  Serious: Yes (Death, Life-Threatening, Hospitalization)
  Sender: FDA-Public Use
  Company Number: None

PATIENT
  Sex: Female
  Weight: 59 kg

DRUGS (1)
  1. REMICADE [Suspect]
     Indication: RHEUMATOID ARTHRITIS
     Dosage: 20 MG /KG MONTHLY IV DRIP
     Route: 041
     Dates: start: 20060209, end: 20060209

REACTIONS (4)
  - DISEASE PROGRESSION [None]
  - INFECTION [None]
  - LOBAR PNEUMONIA [None]
  - LUNG DISORDER [None]
